FAERS Safety Report 8274539 (Version 5)
Quarter: 2013Q3

REPORT INFORMATION
  Report Type: Spontaneous
  Country: US (occurrence: None)
  Receive Date: 20111126
  Receipt Date: 20130715
  Transmission Date: 20140515
  Serious: Yes (Death, Hospitalization, Other)
  Sender: FDA-Public Use
  Company Number: 2011SGN00299

PATIENT
  Age: 23 Year
  Sex: Male

DRUGS (12)
  1. ADCETRIS [Suspect]
     Indication: HODGKIN^S DISEASE
     Dosage: 1.8 MG/KG, Q21D
     Dates: start: 20110922, end: 20111013
  2. HYDROMORPHONE (HYDROMORPHONE) [Concomitant]
  3. MS CONTIN [Concomitant]
  4. ACYCLOVIR (ACYCLOVIR) [Concomitant]
  5. ALLOPURINOL [Concomitant]
  6. FLUCONAZOLE (FLUCONAZOLE) [Concomitant]
  7. HEPARIN (HEPARIN SODIUM) [Concomitant]
  8. OMEPRAZOLE (OMEPRAZOLE) [Concomitant]
  9. POLYETHYLENE GLYCOL (POLYETHYLENE GLYCOL) [Concomitant]
  10. SENOKOT S (DOCUSATE SODIUM, SENNOSIDE A+B) [Concomitant]
  11. SODIUM CHLORIDE INJECTION (SODIUM CHLORIDE INJECTION) [Concomitant]
  12. SULFAMETHOXAZOLE W/TRIMETHOPRIM (SULFAMETHOXAZOLE W/TRIMETHOPRIM) [Concomitant]

REACTIONS (27)
  - Pyrexia [None]
  - Staphylococcal infection [None]
  - Candida infection [None]
  - Culture positive [None]
  - Aspiration tracheal abnormal [None]
  - Culture stool positive [None]
  - Enterococcal infection [None]
  - Hepatic steatosis [None]
  - Atelectasis [None]
  - Pancreatitis [None]
  - Sepsis [None]
  - Acute respiratory distress syndrome [None]
  - Hypotension [None]
  - Generalised oedema [None]
  - Hodgkin^s disease [None]
  - Malignant neoplasm progression [None]
  - Pyrexia [None]
  - Pleural effusion [None]
  - Mass [None]
  - Pancytopenia [None]
  - Bacteraemia [None]
  - Pancreatitis acute [None]
  - Venous stenosis [None]
  - Performance status decreased [None]
  - Staphylococcus test positive [None]
  - Candida test positive [None]
  - Enterococcus test positive [None]
